FAERS Safety Report 16942803 (Version 1)
Quarter: 2019Q4

REPORT INFORMATION
  Report Type: Spontaneous
  Country: US (occurrence: US)
  Receive Date: 20191021
  Receipt Date: 20191021
  Transmission Date: 20200122
  Serious: Yes (Other)
  Sender: FDA-Public Use
  Company Number: US-NAPPMUNDI-USA-2019-0148725

PATIENT
  Sex: Male

DRUGS (4)
  1. FENTANYL CITRATE. [Suspect]
     Active Substance: FENTANYL CITRATE
     Indication: PAIN
     Dosage: 25 MCG, UNK
     Route: 062
     Dates: start: 2013
  2. FENTANYL CITRATE. [Suspect]
     Active Substance: FENTANYL CITRATE
     Dosage: 50 MCG, UNK
     Route: 062
     Dates: start: 2015, end: 2016
  3. BUTRANS [Suspect]
     Active Substance: BUPRENORPHINE
     Indication: PAIN
     Dosage: 10 MCG/HR, WEEKLY
     Route: 062
     Dates: start: 201406
  4. BUTRANS [Suspect]
     Active Substance: BUPRENORPHINE
     Dosage: 25 MCG/HR, WEEKLY
     Route: 062
     Dates: end: 201410

REACTIONS (19)
  - Hyperaesthesia [Unknown]
  - Impaired work ability [Unknown]
  - Seizure [Unknown]
  - Drug withdrawal syndrome [Unknown]
  - Malaise [Unknown]
  - Cognitive disorder [Not Recovered/Not Resolved]
  - Peptic ulcer [Not Recovered/Not Resolved]
  - Muscle spasms [Unknown]
  - Cerebral atrophy [Unknown]
  - Pulmonary valve stenosis [Not Recovered/Not Resolved]
  - Constipation [Not Recovered/Not Resolved]
  - Bedridden [Unknown]
  - Conversion disorder [Unknown]
  - Tremor [Not Recovered/Not Resolved]
  - Tachycardia [Unknown]
  - Disease progression [Unknown]
  - Gastrointestinal erosion [Not Recovered/Not Resolved]
  - Anxiety [Not Recovered/Not Resolved]
  - Hallucination [Unknown]

NARRATIVE: CASE EVENT DATE: 2014
